FAERS Safety Report 13511820 (Version 1)
Quarter: 2017Q2

REPORT INFORMATION
  Report Type: Spontaneous
  Country: US (occurrence: US)
  Receive Date: 20170503
  Receipt Date: 20170503
  Transmission Date: 20170830
  Serious: No
  Sender: FDA-Public Use
  Company Number: None

PATIENT
  Age: 50 Year
  Sex: Female
  Weight: 55.8 kg

DRUGS (4)
  1. ROSUVASTATIN CALCIUM 5 MG [Suspect]
     Active Substance: ROSUVASTATIN CALCIUM
     Indication: BLOOD CHOLESTEROL INCREASED
     Dosage: ?          QUANTITY:30 TABLET(S);?
     Route: 048
  2. SALMON OIL [Concomitant]
     Active Substance: FISH OIL
  3. FLAXSEED [Concomitant]
     Active Substance: FLAX SEED
  4. VITAMIN D [Concomitant]
     Active Substance: CHOLECALCIFEROL

REACTIONS (5)
  - Headache [None]
  - Constipation [None]
  - Muscle spasms [None]
  - Haematochezia [None]
  - Abdominal pain upper [None]

NARRATIVE: CASE EVENT DATE: 20170401
